FAERS Safety Report 16497608 (Version 1)
Quarter: 2019Q2

REPORT INFORMATION
  Report Type: Spontaneous
  Country: GB (occurrence: GB)
  Receive Date: 20190628
  Receipt Date: 20190628
  Transmission Date: 20190711
  Serious: Yes (Hospitalization)
  Sender: FDA-Public Use
  Company Number: GB-FERRINGPH-2019FE03745

PATIENT

DRUGS (2)
  1. DESMOMELT [Suspect]
     Active Substance: DESMOPRESSIN
     Indication: ENURESIS
     Dosage: 240 ?G, UNK
     Route: 060
  2. DESMOMELT [Suspect]
     Active Substance: DESMOPRESSIN
     Dosage: 120 ?G, UNK
     Route: 060

REACTIONS (2)
  - Status epilepticus [Recovered/Resolved]
  - Hyponatraemia [Recovered/Resolved]

NARRATIVE: CASE EVENT DATE: 20190505
